FAERS Safety Report 10224280 (Version 1)
Quarter: 2014Q1

REPORT INFORMATION
  Report Type: Spontaneous
  Country: US (occurrence: None)
  Receive Date: 20140306
  Receipt Date: 20140306
  Transmission Date: 20141002
  Serious: Yes (Other)
  Sender: FDA-Public Use
  Company Number: 163-21880-13101782

PATIENT
  Age: 63 Year
  Sex: Male
  Weight: 83.92 kg

DRUGS (11)
  1. REVLIMID (LENALIDOMIDE) (25 MILLIGRAM, CAPSULES) [Suspect]
     Indication: PLASMA CELL MYELOMA
     Route: 048
     Dates: start: 20110319
  2. CALTRATE 600 + D (CALCITE D) (UNKNOWN [Concomitant]
  3. DECADRON (DEXAMETHASONE) (TABLETS) [Concomitant]
  4. NEURONTIN (GABAPENTIN) (UNKNOWN) [Concomitant]
  5. TRICOR (FENOFIBRATE) (TABLETS) [Concomitant]
  6. ZOMETA (ZOLEDRONIC ACID) (UNKNOWN0 [Concomitant]
  7. WELLBUTRIN (BUPROPION HYDROCHLORIDE) (UNKNOWN) [Concomitant]
  8. MAGNESIUM (MAGNESIUM) (UNKNOWN) [Concomitant]
  9. BENICAR (OLMESARTAN MEDOXOMIL) (TABLETS) [Concomitant]
  10. CONCERTA (METHYLPHENIDATE HYDROCHLORIDE) (TABLETS) [Concomitant]
  11. LEVOXYL (LEVOTHYROXINE SODIUM) (TABLETS) [Concomitant]

REACTIONS (1)
  - Pancytopenia [None]
